FAERS Safety Report 20214201 (Version 1)
Quarter: 2021Q4

REPORT INFORMATION
  Report Type: Spontaneous
  Country: IT (occurrence: IT)
  Receive Date: 20211221
  Receipt Date: 20211221
  Transmission Date: 20220303
  Serious: Yes (Other)
  Sender: FDA-Public Use
  Company Number: IT-MYLANLABS-2021M1095054

PATIENT
  Age: 32 Year
  Sex: Male

DRUGS (2)
  1. METHOTREXATE [Suspect]
     Active Substance: METHOTREXATE
     Indication: Psoriasis
     Dosage: 10 MILLIGRAM, QW
     Route: 030
     Dates: start: 201602
  2. FOLIC ACID [Suspect]
     Active Substance: FOLIC ACID
     Indication: Psoriasis
     Dosage: UNK
     Route: 065
     Dates: start: 201602

REACTIONS (1)
  - Drug ineffective [Unknown]
